FAERS Safety Report 24651395 (Version 3)
Quarter: 2024Q4

REPORT INFORMATION
  Report Type: Spontaneous
  Country: JP (occurrence: JP)
  Receive Date: 20241122
  Receipt Date: 20241212
  Transmission Date: 20250115
  Serious: Yes (Disabling, Other)
  Sender: REGENERON
  Company Number: JP-BAYER-2024A162795

PATIENT
  Age: 80 Year
  Sex: Male

DRUGS (1)
  1. EYLEA HD [Suspect]
     Active Substance: AFLIBERCEPT
     Indication: Age-related macular degeneration
     Dosage: 8 MG AT REGULAR INTERVALS, LEFT EYE , SOLUTION FOR INJECTION, 114.3 MG/ML
     Route: 031

REACTIONS (6)
  - Retinal vascular occlusion [Recovered/Resolved with Sequelae]
  - Blindness unilateral [Not Recovered/Not Resolved]
  - Eye inflammation [Recovered/Resolved with Sequelae]
  - Retinal vasculitis [Recovering/Resolving]
  - Retinal haemorrhage [Unknown]
  - Vitreous opacities [Unknown]
